FAERS Safety Report 5502989-6 (Version None)
Quarter: 2007Q4

REPORT INFORMATION
  Report Type: 
  Country: None (occurrence: None)
  Receive Date: 20071029
  Receipt Date: 20071029
  Transmission Date: 20080405
  Serious: Yes (Hospitalization)
  Sender: FDA-Public Use
  Company Number: None

PATIENT
  Age: 72 Year
  Sex: Female
  Weight: 88.905 kg

DRUGS (2)
  1. BACTRIM DS [Suspect]
     Indication: WOUND
     Dosage: BID PO
     Route: 048
     Dates: start: 20070917, end: 20070929
  2. SULFAMETHOXAZOLE/TRIMETHOPRIM UNKNOWN [Suspect]
     Indication: WOUND
     Dosage: BID PO
     Route: 048
     Dates: start: 20071003, end: 20071008

REACTIONS (7)
  - ATAXIA [None]
  - DRUG INTERACTION [None]
  - INTERNATIONAL NORMALISED RATIO INCREASED [None]
  - RENAL FAILURE ACUTE [None]
  - RESPIRATORY DISORDER [None]
  - THROMBOCYTOPENIA [None]
  - TREMOR [None]
